FAERS Safety Report 6412994-3 (Version None)
Quarter: 2009Q4

REPORT INFORMATION
  Report Type: 
  Country: None (occurrence: None)
  Receive Date: 20091023
  Receipt Date: 20091016
  Transmission Date: 20100525
  Serious: Yes (Hospitalization, Other)
  Sender: FDA-Public Use
  Company Number: PHHY2009AU45356

PATIENT
  Sex: Male

DRUGS (5)
  1. STALEVO 100 [Suspect]
     Dosage: 300 - 400 MG PER DAY
  2. STALEVO 100 [Suspect]
     Dosage: 900 MG PER DAY (6 DIVIDED DOSES)
  3. LYRICA [Concomitant]
     Indication: PAIN
  4. ATIVAN [Concomitant]
     Indication: PAIN
     Dosage: 0.5 UNK, PRN
  5. ANTIHYPERTENSIVES [Concomitant]

REACTIONS (8)
  - AGITATION [None]
  - ANXIETY [None]
  - DEPRESSION [None]
  - HERPES ZOSTER [None]
  - INSOMNIA [None]
  - MUSCLE TWITCHING [None]
  - NIGHTMARE [None]
  - PAIN [None]
